FAERS Safety Report 26010071 (Version 1)
Quarter: 2025Q4

REPORT INFORMATION
  Report Type: Spontaneous
  Country: US (occurrence: US)
  Receive Date: 20251107
  Receipt Date: 20251107
  Transmission Date: 20260118
  Serious: No
  Sender: ABBVIE
  Company Number: US-ABBVIE-6523317

PATIENT

DRUGS (2)
  1. RESTASIS [Suspect]
     Active Substance: CYCLOSPORINE
     Indication: Dry eye
     Route: 047
  2. RESTASIS [Suspect]
     Active Substance: CYCLOSPORINE
     Route: 047

REACTIONS (5)
  - Expired product administered [Recovered/Resolved]
  - Ocular discomfort [Recovered/Resolved]
  - Dry eye [Recovered/Resolved]
  - Eye discharge [Recovered/Resolved]
  - Off label use [Recovered/Resolved]
